FAERS Safety Report 7520171-8 (Version None)
Quarter: 2011Q2

REPORT INFORMATION
  Report Type: 
  Country: None (occurrence: None)
  Receive Date: 20110602
  Receipt Date: 20110530
  Transmission Date: 20111010
  Serious: Yes (Hospitalization)
  Sender: FDA-Public Use
  Company Number: DE-ABBOTT-11P-062-0708239-00

PATIENT
  Sex: Male
  Weight: 72 kg

DRUGS (5)
  1. PREDNISOLONE [Concomitant]
     Indication: CROHN'S DISEASE
  2. HUMIRA [Suspect]
     Indication: CROHN'S DISEASE
     Route: 058
  3. CEFUROXIME [Concomitant]
     Indication: CROHN'S DISEASE
  4. ESOMEPRAZOLE MAGNESIUM [Concomitant]
     Indication: PRODUCT USED FOR UNKNOWN INDICATION
  5. METAMIZOL [Concomitant]
     Indication: CROHN'S DISEASE

REACTIONS (2)
  - ILEAL STENOSIS [None]
  - SACROILIITIS [None]
